FAERS Safety Report 14474750 (Version 3)
Quarter: 2018Q1

REPORT INFORMATION
  Report Type: Spontaneous
  Country: ES (occurrence: ES)
  Receive Date: 20180201
  Receipt Date: 20180302
  Transmission Date: 20180509
  Serious: Yes (Other)
  Sender: FDA-Public Use
  Company Number: ES-JNJFOC-20180134275

PATIENT
  Age: 6 Decade
  Sex: Female

DRUGS (1)
  1. REMICADE [Suspect]
     Active Substance: INFLIXIMAB
     Indication: PRODUCT USED FOR UNKNOWN INDICATION
     Dosage: SINCE 7 YEARS AGO
     Route: 042
     Dates: start: 2011, end: 2017

REACTIONS (3)
  - Arthralgia [Unknown]
  - Psoriasis [Unknown]
  - Uveitis [Unknown]

NARRATIVE: CASE EVENT DATE: 2018
